FAERS Safety Report 14775379 (Version 1)
Quarter: 2018Q2

REPORT INFORMATION
  Report Type: Spontaneous
  Country: US (occurrence: US)
  Receive Date: 20180412
  Receipt Date: 20180412
  Transmission Date: 20180711
  Serious: No
  Sender: FDA-Public Use
  Company Number: None

PATIENT
  Age: 76 Year
  Sex: Female

DRUGS (1)
  1. CAPECITABINE TAB 500MG [Suspect]
     Active Substance: CAPECITABINE

REACTIONS (7)
  - Sunburn [None]
  - Dry mouth [None]
  - Pain in extremity [None]
  - Lip dry [None]
  - Diarrhoea [None]
  - Decreased appetite [None]
  - Rash erythematous [None]

NARRATIVE: CASE EVENT DATE: 20180412
